FAERS Safety Report 9526612 (Version 1)
Quarter: 2013Q3

REPORT INFORMATION
  Report Type: Spontaneous
  Country: GB (occurrence: GB)
  Receive Date: 20130916
  Receipt Date: 20130916
  Transmission Date: 20140515
  Serious: Yes (Other)
  Sender: FDA-Public Use
  Company Number: PHHY2013GB099424

PATIENT
  Age: 75 Year
  Sex: Female
  Weight: 60 kg

DRUGS (26)
  1. FLUCONAZOLE [Suspect]
     Indication: EVIDENCE BASED TREATMENT
     Dosage: 200 MG, QD
     Route: 042
     Dates: start: 20130825, end: 20130827
  2. ADCAL-D3 [Concomitant]
  3. DOCUSATE [Concomitant]
  4. HYDROCORTISONE [Concomitant]
  5. LANSOPRAZOLE [Concomitant]
  6. LEVOTHYROXINE [Concomitant]
  7. PROPRANOLOL [Concomitant]
  8. ORAMORPH [Concomitant]
  9. CHLORPHENAMINE [Concomitant]
  10. PARACETAMOL [Concomitant]
  11. SENNA [Concomitant]
  12. TINZAPARIN [Concomitant]
  13. DIAZEPAM [Concomitant]
  14. DOMPERIDONE [Concomitant]
  15. MEROPENEM [Concomitant]
  16. METRONIDAZOLE [Concomitant]
  17. MORPHINE [Concomitant]
  18. OMEPRAZOLE [Concomitant]
  19. TAZOCIN [Concomitant]
  20. POTASSIUM PHOSPHATE [Concomitant]
  21. POTASSIUM CHLORIDE [Concomitant]
  22. PHOSPHATE SANDOZ [Concomitant]
  23. SUXAMETHONIUM [Concomitant]
  24. TRAMADOL [Concomitant]
  25. ZOPICLONE [Concomitant]
  26. SODIUM PHOSPHATE [Concomitant]

REACTIONS (2)
  - Ventricular tachycardia [Recovered/Resolved]
  - Electrocardiogram QT prolonged [Recovering/Resolving]
